FAERS Safety Report 26185634 (Version 1)
Quarter: 2025Q4

REPORT INFORMATION
  Report Type: Report from Study
  Country: US (occurrence: None)
  Receive Date: 20251222
  Receipt Date: 20251222
  Transmission Date: 20260118
  Serious: Yes (Other)
  Sender: UCB
  Company Number: US-UCBSA-2025080797

PATIENT
  Age: 18 Year
  Weight: 72 kg

DRUGS (14)
  1. FENFLURAMINE [Suspect]
     Active Substance: FENFLURAMINE
     Indication: Product used for unknown indication
     Dosage: 5 MILLILITER, 2X/DAY (BID) (11 MG TOTAL) VIA G-TUBE USE
  2. KEPPRA [Concomitant]
     Active Substance: LEVETIRACETAM
     Indication: Product used for unknown indication
     Dosage: 15 MILLILITER, 2X/DAY (BID)
  3. TOPIRAMATE [Concomitant]
     Active Substance: TOPIRAMATE
     Indication: Product used for unknown indication
     Dosage: 7 MILLILITER, 2X/DAY (BID)
     Route: 061
  4. VALTOCO [Concomitant]
     Active Substance: DIAZEPAM
     Indication: Seizure cluster
     Dosage: INSTILL 0.1 ML (10 MG TOTAL)  AS NEEDED. MAY REPEAT ONCE AS NEEDED IN 4 HOURS
  5. ONFI [Concomitant]
     Active Substance: CLOBAZAM
     Indication: Seizure cluster
     Dosage: 0.5 TABLETS (5 MG TOTAL) TABLET BY MOUTH TWICE DAILY AS NEEDED
     Route: 061
  6. Docusate sodium (Docusate Mini) [Concomitant]
     Indication: Product used for unknown indication
     Dosage: 1 EACH AS DAILY AS NEEDED
  7. BISACODYL [Concomitant]
     Active Substance: BISACODYL
     Indication: Product used for unknown indication
     Dosage: TAKE 2 TABLETS BY MOUTH DAILY
     Route: 061
  8. thiamine (VITAMIN B1) [Concomitant]
     Indication: Product used for unknown indication
     Dosage: TAKE 1 TABLET BY PER G TUBE ROUTE DAILY FOR 8 DOSES
  9. KENALOG [Concomitant]
     Active Substance: TRIAMCINOLONE ACETONIDE
     Indication: Product used for unknown indication
     Dosage: APPLY 1 APPLICATION TO GT  TUBE TOPICALLY 3 (THREE) TIMES DAILY FOR 14 DAYS
  10. VITAMIN D3 [Concomitant]
     Active Substance: CHOLECALCIFEROL
     Indication: Product used for unknown indication
     Dosage: 10 MLS BY PER G TUBE OR BY 300 ML  MOUTH ROUTE DAILY.
  11. BISACODYL [Concomitant]
     Active Substance: BISACODYL
     Indication: Product used for unknown indication
     Dosage: 30 MILLILITER
  12. SODIUM PHOSPHATES [Concomitant]
     Active Substance: SODIUM PHOSPHATE, DIBASIC, ANHYDROUS\SODIUM PHOSPHATE, MONOBASIC, MONOHYDRATE
     Dosage: 133 MLS RECTALLY ONCE
  13. clorazepate (TRANXENE T- TAB) [Concomitant]
     Indication: Product used for unknown indication
     Dosage: TAKE 1.5 TABLETS (11.25 MG TOTAL) BY MOUTH 2 TIMES DAILY
     Route: 061
  14. PHENOBARBITAL [Concomitant]
     Active Substance: PHENOBARBITAL
     Indication: Product used for unknown indication
     Dosage: TAKE 1 TABLET (32.4 MG TOTAL) BY MOUTH EVERY MORNING AND 2 TABLETS (64.8 MG TOTAL) NIGHTLY
     Route: 061

REACTIONS (1)
  - Mitral valve incompetence [Not Recovered/Not Resolved]
